FAERS Safety Report 7301875-9 (Version None)
Quarter: 2011Q1

REPORT INFORMATION
  Report Type: 
  Country: None (occurrence: None)
  Receive Date: 20110218
  Receipt Date: 20110210
  Transmission Date: 20110831
  Serious: Yes (Other)
  Sender: FDA-Public Use
  Company Number: US-ROCHE-736614

PATIENT
  Sex: Female
  Weight: 136.1 kg

DRUGS (1)
  1. ACCUTANE [Suspect]
     Indication: ACNE
     Dosage: ALTERNATING: ON 3 MONTHS, OFF 3 MONTHS.
     Route: 065
     Dates: start: 20050101, end: 20070101

REACTIONS (7)
  - DEPRESSION [None]
  - CROHN'S DISEASE [None]
  - COLITIS ULCERATIVE [None]
  - CALCINOSIS [None]
  - GASTRIC ULCER [None]
  - INFLAMMATORY BOWEL DISEASE [None]
  - GASTROINTESTINAL INJURY [None]
